FAERS Safety Report 4538617-6 (Version None)
Quarter: 2004Q4

REPORT INFORMATION
  Report Type: 
  Country: None (occurrence: None)
  Receive Date: 20041227
  Receipt Date: 20041213
  Transmission Date: 20050328
  Serious: Yes (Other)
  Sender: FDA-Public Use
  Company Number: JP-JNJFOC-20041206039

PATIENT
  Age: 60 Year
  Sex: Male

DRUGS (1)
  1. ITRIZOLE [Suspect]
     Indication: TINEA CRURIS
     Route: 049

REACTIONS (2)
  - EXTRASYSTOLES [None]
  - HEART RATE INCREASED [None]
